FAERS Safety Report 24658560 (Version 1)
Quarter: 2024Q4

REPORT INFORMATION
  Report Type: Spontaneous
  Country: US (occurrence: None)
  Receive Date: 20241122
  Receipt Date: 20241122
  Transmission Date: 20250115
  Serious: Yes (Hospitalization)
  Sender: Public
  Company Number: None

PATIENT
  Sex: Female

DRUGS (5)
  1. EVENITY [Suspect]
     Active Substance: ROMOSOZUMAB-AQQG
     Dosage: FREQ: INJECT 2.34 ML (210 MG TOTAL) UNDER THE SKIN EVERY 30 (THIRTY) DAYS.
     Route: 058
     Dates: start: 20240813
  2. CALCIUM [Concomitant]
     Active Substance: CALCIUM
  3. IRON SLOW [Concomitant]
  4. MAGNESIUM [Concomitant]
     Active Substance: MAGNESIUM
  5. PREGABALIN [Concomitant]
     Active Substance: PREGABALIN

REACTIONS (1)
  - Spinal operation [None]
